FAERS Safety Report 17459641 (Version 1)
Quarter: 2020Q1

REPORT INFORMATION
  Report Type: Spontaneous
  Country: US (occurrence: US)
  Receive Date: 20200225
  Receipt Date: 20200225
  Transmission Date: 20200409
  Serious: No
  Sender: FDA-Public Use
  Company Number: US-ROCHE-2284230

PATIENT
  Sex: Female
  Weight: 30.42 kg

DRUGS (1)
  1. NUTROPIN [Suspect]
     Active Substance: SOMATROPIN
     Indication: GROWTH HORMONE DEFICIENCY
     Dosage: AT NIGHT
     Route: 058
     Dates: start: 20190222

REACTIONS (2)
  - Injection site hypersensitivity [Recovered/Resolved]
  - Urticaria [Recovered/Resolved]
